FAERS Safety Report 13918475 (Version 3)
Quarter: 2018Q2

REPORT INFORMATION
  Report Type: Spontaneous
  Country: US (occurrence: US)
  Receive Date: 20170829
  Receipt Date: 20180525
  Transmission Date: 20180711
  Serious: No
  Sender: FDA-Public Use
  Company Number: US-ACTELION-A-US2017-158713

PATIENT
  Age: 50 Year
  Sex: Male

DRUGS (3)
  1. OPSUMIT [Suspect]
     Active Substance: MACITENTAN
     Indication: PULMONARY ARTERIAL HYPERTENSION
     Dosage: 10 MG, QD
     Route: 048
     Dates: start: 20131218
  2. TYVASO [Suspect]
     Active Substance: TREPROSTINIL
     Dosage: 12 BREATHS QID
     Route: 055
  3. TYVASO [Suspect]
     Active Substance: TREPROSTINIL
     Indication: PRODUCT USED FOR UNKNOWN INDICATION
     Dosage: 9 BREATHS QID
     Route: 055
     Dates: start: 201709

REACTIONS (3)
  - Headache [Unknown]
  - Flushing [Not Recovered/Not Resolved]
  - Hypotension [Recovered/Resolved]
